FAERS Safety Report 7148858-X (Version None)
Quarter: 2010Q4

REPORT INFORMATION
  Report Type: 
  Country: None (occurrence: None)
  Receive Date: 20101209
  Receipt Date: 20101201
  Transmission Date: 20110411
  Serious: Yes (Other)
  Sender: FDA-Public Use
  Company Number: JP-B.I. PHARMACEUTICALS,INC./RIDGEFIELD-2010-DE-06716GD

PATIENT
  Sex: Male

DRUGS (1)
  1. NEVIRAPINE [Suspect]
     Indication: HIV INFECTION

REACTIONS (5)
  - AIDS ENCEPHALOPATHY [None]
  - DEMENTIA [None]
  - DIZZINESS [None]
  - GAIT DISTURBANCE [None]
  - LACTIC ACIDOSIS [None]
